FAERS Safety Report 4263051-6 (Version None)
Quarter: 2004Q1

REPORT INFORMATION
  Report Type: 
  Country: None (occurrence: None)
  Receive Date: 20040105
  Receipt Date: 20030901
  Transmission Date: 20041129
  Serious: Yes (Hospitalization)
  Sender: FDA-Public Use
  Company Number: GB-ROCHE-345879

PATIENT
  Age: 66 Year
  Sex: Male
  Weight: 88.5 kg

DRUGS (13)
  1. MYCOPHENOLATE MOFETIL [Suspect]
     Route: 048
     Dates: start: 20030330
  2. DACLIZUMAB [Suspect]
     Route: 042
     Dates: start: 20030329, end: 20030329
  3. DACLIZUMAB [Suspect]
     Route: 042
     Dates: start: 20030412, end: 20030412
  4. SIROLIMUS [Suspect]
     Route: 048
     Dates: start: 20030330, end: 20031218
  5. PREDNISOLONE [Suspect]
     Route: 048
     Dates: start: 20030330
  6. LANSOPRAZOLE [Concomitant]
     Route: 048
  7. COTRIM [Concomitant]
     Route: 048
  8. FERROUS SULFATE TAB [Concomitant]
     Route: 048
  9. EPO [Concomitant]
     Route: 058
  10. FURSEMIDE [Concomitant]
     Route: 048
  11. ATENOLOL [Concomitant]
     Route: 048
  12. ATORVASTATIN [Concomitant]
     Route: 048
  13. GLUCAZIDE [Concomitant]
     Route: 048

REACTIONS (8)
  - BLOOD CREATININE ABNORMAL [None]
  - BLOOD GLUCOSE INCREASED [None]
  - CELLULITIS [None]
  - OEDEMA PERIPHERAL [None]
  - PAIN IN EXTREMITY [None]
  - RENAL ARTERY STENOSIS [None]
  - TRANSPLANT REJECTION [None]
  - VASCULITIS [None]
